FAERS Safety Report 7287501-6 (Version None)
Quarter: 2011Q1

REPORT INFORMATION
  Report Type: 
  Country: None (occurrence: None)
  Receive Date: 20110211
  Receipt Date: 20110209
  Transmission Date: 20110831
  Serious: Yes (Other)
  Sender: FDA-Public Use
  Company Number: US-ASTRAZENECA-2007UW25110

PATIENT
  Age: 45 Year
  Sex: Female
  Weight: 101.6 kg

DRUGS (51)
  1. SEROQUEL [Suspect]
     Indication: SCHIZOPHRENIA
     Route: 048
     Dates: start: 20000601
  2. SEROQUEL [Suspect]
     Dosage: 25 MG - 150 MG
     Route: 048
     Dates: start: 20001110
  3. SEROQUEL [Suspect]
     Dosage: 25 MG - 150 MG
     Route: 048
     Dates: start: 20001110
  4. SEROQUEL [Suspect]
     Dosage: 25 MG TAB FOUR A DAY
     Route: 048
     Dates: start: 20090101
  5. SYNTHROID [Concomitant]
     Indication: THYROID DISORDER
     Dates: start: 20090101
  6. IBUPROFEN [Concomitant]
     Route: 065
  7. IMODIUM [Concomitant]
     Route: 065
  8. GEODON [Concomitant]
  9. URSODIOL [Concomitant]
     Route: 048
  10. ABILIFY [Concomitant]
     Route: 065
  11. FLUOXETINE [Concomitant]
     Indication: DEPRESSION
     Dosage: 20 MG/ 5 ML SOLUTION ONE TEASPOON TWICE A DAY
     Dates: start: 20090101
  12. SEROQUEL [Suspect]
     Route: 048
     Dates: start: 20000601, end: 20071201
  13. SEROQUEL [Suspect]
     Route: 048
     Dates: start: 20000601, end: 20071201
  14. SEROQUEL [Suspect]
     Route: 048
     Dates: start: 20000601, end: 20071201
  15. SEROQUEL [Suspect]
     Dosage: 25 MG - 150 MG
     Route: 048
     Dates: start: 20001110
  16. KLONOPIN [Concomitant]
     Indication: DEPRESSION
     Dosage: 1 MG TO 4 MG
     Dates: start: 20090101
  17. KLONOPIN [Concomitant]
     Indication: PANIC ATTACK
     Dosage: 1 MG TO 4 MG
     Dates: start: 20090101
  18. OXYCODONE HCL [Concomitant]
     Route: 065
  19. AVIANE-28 [Concomitant]
     Route: 065
  20. FUROSEMIDE [Concomitant]
     Route: 065
  21. VESICARE [Concomitant]
     Route: 065
  22. SEROQUEL [Suspect]
     Indication: POST-TRAUMATIC STRESS DISORDER
     Route: 048
     Dates: start: 20000601
  23. METFORMIN HCL [Concomitant]
     Indication: GLUCOSE TOLERANCE IMPAIRED
     Route: 065
  24. PROZAC [Concomitant]
     Dosage: 20-30 MG
     Route: 048
     Dates: start: 20060101
  25. SYNTHROID [Concomitant]
     Route: 048
  26. SEROQUEL [Suspect]
     Indication: ANXIETY
     Route: 048
     Dates: start: 20000601
  27. SEROQUEL [Suspect]
     Dosage: 25 MG - 150 MG
     Route: 048
     Dates: start: 20001110
  28. SEROQUEL [Suspect]
     Dosage: 25 MG - 150 MG
     Route: 048
     Dates: start: 20001110
  29. SEROQUEL [Suspect]
     Dosage: 25 MG TAB FOUR A DAY
     Route: 048
     Dates: start: 20090101
  30. KLONOPIN [Concomitant]
     Dosage: 1-3 MG
     Route: 048
  31. KLONOPIN [Concomitant]
     Dosage: 1-3 MG
     Route: 048
  32. KLONOPIN [Concomitant]
     Dosage: 1-3 MG
     Route: 048
  33. TRIAMTERENE [Concomitant]
     Route: 065
  34. MIRENA [Concomitant]
     Indication: HAEMORRHAGE
     Dates: start: 20090211
  35. SEROQUEL [Suspect]
     Route: 048
     Dates: start: 20000601, end: 20071201
  36. CRESTOR [Concomitant]
     Indication: BLOOD CHOLESTEROL INCREASED
     Dates: start: 20090101
  37. SEROQUEL [Suspect]
     Indication: DEPRESSION
     Route: 048
     Dates: start: 20000601
  38. SEROQUEL [Suspect]
     Indication: SLEEP DISORDER
     Route: 048
     Dates: start: 20000601
  39. SEROQUEL [Suspect]
     Indication: PANIC ATTACK
     Route: 048
     Dates: start: 20000601
  40. SEROQUEL [Suspect]
     Route: 048
     Dates: start: 20000601, end: 20071201
  41. SEROQUEL [Suspect]
     Route: 048
     Dates: start: 20000601, end: 20071201
  42. SEROQUEL [Suspect]
     Dosage: 25 MG - 150 MG
     Route: 048
     Dates: start: 20001110
  43. KLONOPIN [Concomitant]
     Indication: ANXIETY
     Dosage: 1 MG TO 4 MG
     Dates: start: 20090101
  44. FLAXSEED OIL [Concomitant]
     Route: 065
  45. SEROQUEL [Suspect]
     Dosage: 25 MG TAB FOUR A DAY
     Route: 048
     Dates: start: 20090101
  46. SEROQUEL [Suspect]
     Dosage: 25 MG TAB FOUR A DAY
     Route: 048
     Dates: start: 20090101
  47. SEROQUEL [Suspect]
     Dosage: 25 MG TAB FOUR A DAY
     Route: 048
     Dates: start: 20090101
  48. SEROQUEL [Suspect]
     Dosage: 25 MG TAB FOUR A DAY
     Route: 048
     Dates: start: 20090101
  49. VICODIN [Concomitant]
     Indication: PAIN
     Route: 065
     Dates: start: 20090101
  50. DIAZIDE [Concomitant]
     Route: 065
  51. TRIAMTERENE AND HYDROCHLOROTHIAZIDE [Concomitant]
     Indication: HYPERTENSION
     Dosage: 37.5 - 25 MG CAPSULE ONE DAILY
     Dates: start: 20090101

REACTIONS (7)
  - VAGINAL HAEMORRHAGE [None]
  - DIABETIC COMPLICATION [None]
  - OVARIAN DISORDER [None]
  - BLOOD TRIGLYCERIDES INCREASED [None]
  - OBESITY [None]
  - JOINT INJURY [None]
  - TYPE 2 DIABETES MELLITUS [None]
